FAERS Safety Report 11133133 (Version 9)
Quarter: 2015Q4

REPORT INFORMATION
  Report Type: Spontaneous
  Country: FR (occurrence: FR)
  Receive Date: 20150522
  Receipt Date: 20151028
  Transmission Date: 20160304
  Serious: Yes (Disabling, Congenital Anomaly)
  Sender: FDA-Public Use
  Company Number: FR-ABBVIE-15P-056-1395545-00

PATIENT
  Sex: Male

DRUGS (1)
  1. DEPAKINE CHRONO [Suspect]
     Active Substance: VALPROATE SODIUM
     Indication: MATERNAL EXPOSURE TIMING UNSPECIFIED
     Route: 064

REACTIONS (16)
  - Cardiac murmur [Not Recovered/Not Resolved]
  - Anger [Unknown]
  - Atrial septal defect [Unknown]
  - Developmental delay [Not Recovered/Not Resolved]
  - Psychomotor retardation [Unknown]
  - Dysmorphism [Not Recovered/Not Resolved]
  - Congenital anomaly [Unknown]
  - Intelligence test abnormal [Not Recovered/Not Resolved]
  - Mental retardation [Not Recovered/Not Resolved]
  - Foetal exposure during pregnancy [Unknown]
  - Finger deformity [Not Recovered/Not Resolved]
  - Hypotonia [Not Recovered/Not Resolved]
  - Speech disorder developmental [Not Recovered/Not Resolved]
  - Abnormal behaviour [Not Recovered/Not Resolved]
  - Autism [Not Recovered/Not Resolved]
  - Muscular weakness [Not Recovered/Not Resolved]

NARRATIVE: CASE EVENT DATE: 1995
